FAERS Safety Report 8318640-6 (Version None)
Quarter: 2012Q2

REPORT INFORMATION
  Report Type: 
  Country: None (occurrence: None)
  Receive Date: 20120427
  Receipt Date: 20090812
  Transmission Date: 20120825
  Serious: No
  Sender: FDA-Public Use
  Company Number: US-TEVA-2009009592

PATIENT
  Sex: Female

DRUGS (6)
  1. CONTRACEPTION [Concomitant]
  2. VITAMIN TAB [Concomitant]
  3. ALLERGY MEDICATION [Concomitant]
  4. NUVIGIL [Suspect]
     Indication: HYPERSOMNIA
     Route: 048
     Dates: start: 20090719
  5. ACNE MEDICATION [Concomitant]
  6. ANTIDEPRESSANT [Concomitant]

REACTIONS (2)
  - PARAESTHESIA [None]
  - HYPOAESTHESIA [None]
